FAERS Safety Report 24660321 (Version 1)
Quarter: 2024Q4

REPORT INFORMATION
  Report Type: Spontaneous
  Country: US (occurrence: US)
  Receive Date: 20241125
  Receipt Date: 20241125
  Transmission Date: 20250114
  Serious: No
  Sender: NOVARTIS
  Company Number: US-002147023-NVSC2024US225644

PATIENT
  Sex: Female

DRUGS (1)
  1. LEQVIO [Suspect]
     Active Substance: INCLISIRAN SODIUM
     Indication: Product used for unknown indication
     Dosage: UNK, OTHER (284 MG/1.5 ML, INITIAL DOSE, ANOTHER AT 3 MONTHS, AND THEN EVERY 6 MONTHS)
     Route: 058

REACTIONS (1)
  - Injection site rash [Not Recovered/Not Resolved]
